FAERS Safety Report 16635320 (Version 1)
Quarter: 2019Q3

REPORT INFORMATION
  Report Type: Spontaneous
  Country: BE (occurrence: BE)
  Receive Date: 20190726
  Receipt Date: 20190726
  Transmission Date: 20191004
  Serious: Yes (Other)
  Sender: FDA-Public Use
  Company Number: BE-ACCORD-149018

PATIENT
  Age: 57 Year
  Sex: Male

DRUGS (7)
  1. DABRAFENIB [Suspect]
     Active Substance: DABRAFENIB
     Indication: ERDHEIM-CHESTER DISEASE
     Dosage: 150 MG, BID
     Route: 065
  2. TRAMETINIB [Concomitant]
     Active Substance: TRAMETINIB
     Indication: ERDHEIM-CHESTER DISEASE
     Dosage: 2 MG, QD
     Route: 065
  3. DABRAFENIB [Suspect]
     Active Substance: DABRAFENIB
     Indication: ERDHEIM-CHESTER DISEASE
     Dosage: 75 MG, BID
     Route: 065
  4. DABRAFENIB [Suspect]
     Active Substance: DABRAFENIB
     Indication: ERDHEIM-CHESTER DISEASE
     Dosage: 300 MG, QD
     Route: 065
  5. MYCOPHENOLIC ACID. [Suspect]
     Active Substance: MYCOPHENOLIC ACID
     Indication: RETROPERITONEAL FIBROSIS
  6. METHYLPREDNISOLONE. [Suspect]
     Active Substance: METHYLPREDNISOLONE
     Indication: RETROPERITONEAL FIBROSIS
     Dosage: METHYLPREDNISOLONE INCREASED SHORTLY PRIOR TO PRESENTATION TO 32 MG/D DUE TO DISEASE PR
     Route: 065
  7. MYCOPHENOLIC ACID. [Suspect]
     Active Substance: MYCOPHENOLIC ACID
     Indication: RETROPERITONEAL FIBROSIS
     Dosage: 3 MG, QD

REACTIONS (3)
  - Off label use [Unknown]
  - Staphylococcal bacteraemia [Unknown]
  - Arthralgia [Unknown]
